FAERS Safety Report 22952934 (Version 2)
Quarter: 2023Q4

REPORT INFORMATION
  Report Type: Report from Study
  Country: CA (occurrence: CA)
  Receive Date: 20230918
  Receipt Date: 20231030
  Transmission Date: 20240110
  Serious: Yes (Other)
  Sender: FDA-Public Use
  Company Number: CA-JNJFOC-20230807211

PATIENT
  Age: 50 Year
  Sex: Female
  Weight: 93 kg

DRUGS (1)
  1. REMICADE [Suspect]
     Active Substance: INFLIXIMAB
     Indication: Psoriasis
     Dosage: EXPIRY: 28-FEB-2026, -MAR-2026
     Route: 042

REACTIONS (3)
  - Dermatitis contact [Recovered/Resolved]
  - Arthropod bite [Unknown]
  - Psoriasis [Unknown]

NARRATIVE: CASE EVENT DATE: 20231015
